FAERS Safety Report 6539087-9 (Version None)
Quarter: 2010Q1

REPORT INFORMATION
  Report Type: 
  Country: None (occurrence: None)
  Receive Date: 20100115
  Receipt Date: 20100107
  Transmission Date: 20100710
  Serious: Yes (Other)
  Sender: FDA-Public Use
  Company Number: PHHY2010BR01128

PATIENT
  Age: 73 Year
  Sex: Female
  Weight: 53 kg

DRUGS (2)
  1. EXELON [Suspect]
     Indication: DEMENTIA ALZHEIMER'S TYPE
     Dosage: 1 CAPSULE TWICE PER DAY
     Dates: start: 20070101
  2. CATAFLAM [Concomitant]
     Indication: PAIN
     Dosage: UNK

REACTIONS (8)
  - BLOOD CHOLESTEROL INCREASED [None]
  - NAUSEA [None]
  - OSTEOARTHRITIS [None]
  - OSTEOPOROSIS [None]
  - PAIN [None]
  - RENAL DISORDER [None]
  - TREMOR [None]
  - VOMITING [None]
